FAERS Safety Report 19560545 (Version 1)
Quarter: 2021Q3

REPORT INFORMATION
  Report Type: Spontaneous
  Country: US (occurrence: US)
  Receive Date: 20210715
  Receipt Date: 20210715
  Transmission Date: 20211014
  Serious: No
  Sender: FDA-Public Use
  Company Number: None

PATIENT
  Sex: Female

DRUGS (5)
  1. ALBUTEROL SULFATE HFA [Concomitant]
     Active Substance: ALBUTEROL SULFATE
  2. FLONASE NS [Concomitant]
  3. VERZENIO [Suspect]
     Active Substance: ABEMACICLIB
     Indication: BREAST CANCER
     Route: 048
  4. MULTIVITAMIN TAB [Concomitant]
  5. LETROZOLE 2.5 MG TAB [Concomitant]

REACTIONS (3)
  - Lymphadenectomy [None]
  - Hair texture abnormal [None]
  - Diarrhoea [None]
